FAERS Safety Report 7843880-X (Version None)
Quarter: 2011Q4

REPORT INFORMATION
  Report Type: 
  Country: None (occurrence: None)
  Receive Date: 20111025
  Receipt Date: 20111019
  Transmission Date: 20120403
  Serious: Yes (Hospitalization, Other)
  Sender: FDA-Public Use
  Company Number: BR-PFIZER INC-2011221590

PATIENT
  Age: 33 Year
  Sex: Male
  Weight: 64 kg

DRUGS (5)
  1. VARENICLINE TARTRATE [Suspect]
     Indication: SMOKING CESSATION THERAPY
     Dosage: UNK
     Route: 048
     Dates: start: 20100901, end: 20100101
  2. CLONAZEPAM [Concomitant]
     Dosage: UNK
  3. ZOLOFT [Concomitant]
     Dosage: 100 MG, 1X/DAY
     Dates: start: 20110101
  4. VARENICLINE TARTRATE [Suspect]
     Dosage: 1 MG, 2X/DAY
     Route: 048
     Dates: start: 20100101, end: 20100101
  5. BUPROPION [Concomitant]

REACTIONS (5)
  - ANHEDONIA [None]
  - MORBID THOUGHTS [None]
  - MAJOR DEPRESSION [None]
  - DEPRESSED MOOD [None]
  - DEPRESSION [None]
